FAERS Safety Report 7471770-3 (Version None)
Quarter: 2011Q2

REPORT INFORMATION
  Report Type: 
  Country: None (occurrence: None)
  Receive Date: 20110511
  Receipt Date: 20100421
  Transmission Date: 20111010
  Serious: No
  Sender: FDA-Public Use
  Company Number: A0856092A

PATIENT
  Age: 62 Year
  Sex: Female

DRUGS (4)
  1. EMO CORT [Concomitant]
  2. CHEMOTHERAPY [Concomitant]
  3. CALCIUM CHANNEL BLOCKER [Concomitant]
  4. TYKERB [Suspect]
     Dosage: 2TAB TWICE PER DAY
     Route: 048
     Dates: start: 20100416

REACTIONS (2)
  - DIARRHOEA [None]
  - NAUSEA [None]
